FAERS Safety Report 11860420 (Version 1)
Quarter: 2015Q4

REPORT INFORMATION
  Report Type: Spontaneous
  Country: SE (occurrence: SE)
  Receive Date: 20151222
  Receipt Date: 20151222
  Transmission Date: 20160305
  Serious: Yes (Other)
  Sender: FDA-Public Use
  Company Number: SE-GE HEALTHCARE MEDICAL DIAGNOSTICS-VISP-E2B_00000197

PATIENT
  Age: 50 Year
  Sex: Male

DRUGS (7)
  1. SAROTEN [Concomitant]
     Active Substance: AMITRIPTYLINE
  2. VISIPAQUE [Suspect]
     Active Substance: IODIXANOL
     Indication: DIAGNOSTIC PROCEDURE
  3. DIMETICONE [Concomitant]
     Active Substance: DIMETHICONE
  4. ASACOL [Concomitant]
     Active Substance: MESALAMINE
  5. ALVEDON [Concomitant]
     Active Substance: ACETAMINOPHEN
  6. OXYNORM [Concomitant]
     Active Substance: OXYCODONE HYDROCHLORIDE
     Dates: start: 20151115
  7. VISIPAQUE [Suspect]
     Active Substance: IODIXANOL
     Indication: ROAD TRAFFIC ACCIDENT
     Route: 042
     Dates: start: 20151115, end: 20151115

REACTIONS (7)
  - Swelling face [Recovered/Resolved]
  - Erythema [Recovered/Resolved]
  - Peripheral swelling [Recovered/Resolved]
  - Pruritus [Recovered/Resolved]
  - Rash [Recovered/Resolved]
  - Anxiety [Recovered/Resolved]
  - Hypersensitivity [Recovered/Resolved]

NARRATIVE: CASE EVENT DATE: 20151116
